FAERS Safety Report 10419190 (Version 1)
Quarter: 2014Q2

REPORT INFORMATION
  Report Type: Spontaneous
  Country: US (occurrence: None)
  Receive Date: 20140617
  Receipt Date: 20140617
  Transmission Date: 20141212
  Serious: Yes (Hospitalization)
  Sender: FDA-Public Use
  Company Number: 1203932

PATIENT
  Age: 67 Year
  Sex: Female
  Weight: 77.11 kg

DRUGS (3)
  1. ACTERMA 5% TWO INFUSION DOSES [Suspect]
     Indication: RHEUMATOID ARTHRITIS
     Dosage: FOUR MOST RECENT DOSES WERE IN SUMMER OF 2012 (1 IN 1 M), INTRAVENOUS (NOT OTHERWISE SPECIFIED)
     Route: 042
     Dates: start: 201201, end: 20120604
  2. SULFAZINE (SULFASALAZINE) (TABLET) [Concomitant]
  3. PREDNISONE (TABLET) [Concomitant]

REACTIONS (3)
  - Peripheral swelling [None]
  - Staphylococcal infection [None]
  - Pain in extremity [None]
